FAERS Safety Report 6041757-6 (Version None)
Quarter: 2009Q1

REPORT INFORMATION
  Report Type: 
  Country: None (occurrence: None)
  Receive Date: 20090116
  Receipt Date: 20090106
  Transmission Date: 20090719
  Serious: Yes (Other)
  Sender: FDA-Public Use
  Company Number: JP-PFIZER INC-2009152708

PATIENT

DRUGS (2)
  1. SOLU-MEDROL [Suspect]
     Indication: NAUSEA
     Dosage: 125 MG, UNK
     Route: 042
     Dates: start: 20090102, end: 20090101
  2. IOPAMIDOL [Suspect]
     Indication: COMPUTERISED TOMOGRAM
     Dosage: 500 ML, UNK
     Route: 042
     Dates: start: 20090102

REACTIONS (3)
  - DYSPNOEA [None]
  - NAUSEA [None]
  - RESPIRATORY ARREST [None]
